FAERS Safety Report 5329297-0 (Version None)
Quarter: 2007Q2

REPORT INFORMATION
  Report Type: 
  Country: None (occurrence: None)
  Receive Date: 20070518
  Receipt Date: 20070507
  Transmission Date: 20071010
  Serious: Yes (Other)
  Sender: FDA-Public Use
  Company Number: US-PFIZER INC-2007037904

PATIENT
  Sex: Female
  Weight: 58.181 kg

DRUGS (9)
  1. CHANTIX [Suspect]
     Indication: SMOKING CESSATION THERAPY
     Dates: start: 20070416, end: 20070426
  2. CORTAID [Suspect]
     Indication: RASH
     Route: 061
  3. ADVIL PM [Suspect]
     Indication: RASH
  4. PREMARIN [Concomitant]
  5. VITAMIN CAP [Concomitant]
  6. ALLEGRA D 24 HOUR [Concomitant]
  7. ACETYLSALICYLIC ACID SRT [Concomitant]
  8. VITAMIN B-12 [Concomitant]
  9. ADVAIR DISKUS 100/50 [Concomitant]

REACTIONS (3)
  - RASH [None]
  - SOMNOLENCE [None]
  - WHEEZING [None]
